FAERS Safety Report 13739154 (Version 1)
Quarter: 2017Q3

REPORT INFORMATION
  Report Type: Spontaneous
  Country: US (occurrence: US)
  Receive Date: 20170710
  Receipt Date: 20170710
  Transmission Date: 20171127
  Serious: No
  Sender: FDA-Public Use
  Company Number: US-SAOL THERAPEUTICS-2017SAO00638

PATIENT
  Age: 57 Year
  Sex: Male
  Weight: 87.98 kg

DRUGS (5)
  1. HYDROCHLOROTHIAZIDE. [Concomitant]
     Active Substance: HYDROCHLOROTHIAZIDE
  2. ATENOLOL. [Concomitant]
     Active Substance: ATENOLOL
  3. PRAVASTATIN. [Concomitant]
     Active Substance: PRAVASTATIN
  4. LIORESAL [Suspect]
     Active Substance: BACLOFEN
     Dosage: 1051 ?G, \DAY
     Route: 037
     Dates: start: 20170123, end: 20170330
  5. LIORESAL [Suspect]
     Active Substance: BACLOFEN
     Dosage: 1211.0 ?G, \DAY
     Route: 037
     Dates: start: 20170330

REACTIONS (4)
  - Therapeutic response decreased [Unknown]
  - Fall [Recovered/Resolved]
  - Muscle spasms [Recovering/Resolving]
  - Muscle spasticity [Recovering/Resolving]

NARRATIVE: CASE EVENT DATE: 20170330
